FAERS Safety Report 11320339 (Version 1)
Quarter: 2015Q3

REPORT INFORMATION
  Report Type: Spontaneous
  Country: FR (occurrence: FR)
  Receive Date: 20150729
  Receipt Date: 20150729
  Transmission Date: 20151125
  Serious: Yes (Other)
  Sender: FDA-Public Use
  Company Number: PHHY2011FR43738

PATIENT
  Age: 38 Year
  Sex: Female

DRUGS (1)
  1. PREDNISONE. [Suspect]
     Active Substance: PREDNISONE
     Indication: CENTRAL NERVOUS SYSTEM LESION
     Dosage: 1 MG/KG, UNK

REACTIONS (8)
  - Myopathy [Recovering/Resolving]
  - Condition aggravated [Recovering/Resolving]
  - Drug ineffective [Unknown]
  - Central nervous system lesion [Recovering/Resolving]
  - Bedridden [Recovering/Resolving]
  - Diabetes mellitus [Recovering/Resolving]
  - Weight increased [Recovering/Resolving]
  - Headache [Recovered/Resolved]
